FAERS Safety Report 16360097 (Version 2)
Quarter: 2019Q2

REPORT INFORMATION
  Report Type: Report from Study
  Country: None (occurrence: US)
  Receive Date: 20190528
  Receipt Date: 20190625
  Transmission Date: 20190711
  Serious: Yes (Other)
  Sender: FDA-Public Use
  Company Number: US-ABBVIE-19K-163-2780731-00

PATIENT
  Age: 67 Year
  Sex: Male
  Weight: 83.99 kg

DRUGS (3)
  1. HUMIRA [Suspect]
     Active Substance: ADALIMUMAB
     Indication: PSORIASIS
     Route: 058
     Dates: start: 20150427, end: 201905
  2. AMLODIPINE [Concomitant]
     Active Substance: AMLODIPINE BESYLATE
     Indication: HYPERTENSION
  3. HUMIRA [Suspect]
     Active Substance: ADALIMUMAB
     Route: 058
     Dates: start: 201905

REACTIONS (6)
  - Pruritus genital [Recovered/Resolved]
  - Pruritus genital [Recovered/Resolved]
  - Acquired phimosis [Recovered/Resolved]
  - Balanitis candida [Recovered/Resolved]
  - Acquired phimosis [Recovered/Resolved]
  - Balanitis candida [Recovered/Resolved]

NARRATIVE: CASE EVENT DATE: 201902
